FAERS Safety Report 22340498 (Version 1)
Quarter: 2023Q2

REPORT INFORMATION
  Report Type: Report from Study
  Country: DE (occurrence: DE)
  Receive Date: 20230518
  Receipt Date: 20230518
  Transmission Date: 20230722
  Serious: Yes (Other)
  Sender: FDA-Public Use
  Company Number: DE-GILEAD-2023-0628533

PATIENT
  Age: 63 Year
  Sex: Male

DRUGS (3)
  1. BREXUCABTAGENE AUTOLEUCEL [Suspect]
     Active Substance: BREXUCABTAGENE AUTOLEUCEL
     Indication: Non-Hodgkin^s lymphoma stage IV
     Route: 065
  2. FLUDARABINE [Concomitant]
     Active Substance: FLUDARABINE PHOSPHATE
     Indication: Bone marrow conditioning regimen
  3. CYCLOPHOSPHAMIDE [Concomitant]
     Active Substance: CYCLOPHOSPHAMIDE
     Indication: Bone marrow conditioning regimen

REACTIONS (5)
  - Urosepsis [Unknown]
  - Polyneuropathy [Recovered/Resolved]
  - Cytokine release syndrome [Unknown]
  - Immune effector cell-associated neurotoxicity syndrome [Unknown]
  - Asthenia [Unknown]
